FAERS Safety Report 20222970 (Version 1)
Quarter: 2021Q4

REPORT INFORMATION
  Report Type: Spontaneous
  Country: US (occurrence: US)
  Receive Date: 20211223
  Receipt Date: 20211223
  Transmission Date: 20220303
  Serious: Yes (Other)
  Sender: FDA-Public Use
  Company Number: US-PFIZER INC-2016531461

PATIENT
  Age: 61 Year
  Sex: Female

DRUGS (18)
  1. RAPAMUNE [Suspect]
     Active Substance: SIROLIMUS
     Indication: Liver transplant
     Dosage: 3 MG, DAILY
     Route: 048
     Dates: start: 20151123
  2. RAPAMUNE [Suspect]
     Active Substance: SIROLIMUS
     Dosage: 4 MG, DAILY
  3. RAPAMUNE [Suspect]
     Active Substance: SIROLIMUS
     Dosage: 2-4 PILLS DAILY AS DIRECTED
     Route: 048
     Dates: start: 20180117
  4. ACYCLOVIR [Concomitant]
     Active Substance: ACYCLOVIR
     Dosage: 400 MG, 2X/DAY
     Route: 048
     Dates: start: 20160913
  5. CYCLOBENZAPRINE HYDROCHLORIDE [Concomitant]
     Active Substance: CYCLOBENZAPRINE HYDROCHLORIDE
     Indication: Muscle spasms
     Dosage: UNK UNK, AS NEEDED (/2-1 TAB BID PRN SPASM)
     Route: 048
     Dates: start: 20160202
  6. FENOFIBRATE [Concomitant]
     Active Substance: FENOFIBRATE
     Dosage: 67 MG, 1X/DAY
     Route: 048
     Dates: start: 20160118
  7. FISH OIL [Concomitant]
     Active Substance: FISH OIL
     Dosage: 500 MG, UNK
     Route: 048
     Dates: start: 20160727
  8. GABAPENTIN [Concomitant]
     Active Substance: GABAPENTIN
     Indication: Neuralgia
     Dosage: 300 MG, (ONE CAPSULE EVERY HOURS)
     Route: 048
     Dates: start: 20150904
  9. INDERAL [Concomitant]
     Active Substance: PROPRANOLOL HYDROCHLORIDE
     Dosage: 120 MG, DAILY
     Route: 048
     Dates: start: 20150904
  10. LANSOPRAZOLE [Concomitant]
     Active Substance: LANSOPRAZOLE
     Dosage: 30 MG, 2X/DAY (30 MINUTES BEFORE BREAKFAST AND DINNER)
     Route: 048
     Dates: start: 20141119
  11. LOSARTAN POTASSIUM [Concomitant]
     Active Substance: LOSARTAN POTASSIUM
     Dosage: 25 MG, DAILY
     Route: 048
     Dates: start: 20160516
  12. MOVANTIK [Concomitant]
     Active Substance: NALOXEGOL OXALATE
     Dosage: 25 MG, UNK
     Route: 048
     Dates: start: 20160926
  13. NORTRIPTYLINE HYDROCHLORIDE [Concomitant]
     Active Substance: NORTRIPTYLINE HYDROCHLORIDE
     Dosage: 25 MG, 1X/DAY (AT BEDTIME)
     Route: 048
     Dates: start: 20141119
  14. OXYCODONE HYDROCHLORIDE [Concomitant]
     Active Substance: OXYCODONE HYDROCHLORIDE
     Indication: Pain
     Dosage: 5 MG, AS NEEDED (TAKE 1-2 TABS QSH), (MAX 5 TABS/DAY OK TO FULL ON OR AFTER 12OCT2016)
     Route: 048
     Dates: start: 20151124
  15. VITAMINS [Concomitant]
     Active Substance: VITAMINS
     Dosage: (PRENATAL 19 ORAL TABLET)
     Route: 048
     Dates: start: 20160727
  16. SUMATRIPTAN SUCCINATE [Concomitant]
     Active Substance: SUMATRIPTAN SUCCINATE
     Indication: Migraine
     Dosage: 50 MG, (EVERY 2 HOURS, MAX 200 MG/DAY)
     Route: 048
     Dates: start: 20160223
  17. ZOLPIDEM TARTRATE [Concomitant]
     Active Substance: ZOLPIDEM TARTRATE
     Indication: Insomnia
     Dosage: 10 MG, AS NEEDED (AT BEDTIME)
     Route: 048
     Dates: start: 20160310
  18. ZOVIRAX [Concomitant]
     Active Substance: ACYCLOVIR
     Dosage: 400 MG, 2X/DAY
     Route: 048
     Dates: start: 20160727

REACTIONS (2)
  - Lower limb fracture [Unknown]
  - Off label use [Unknown]

NARRATIVE: CASE EVENT DATE: 20151123
